FAERS Safety Report 16685037 (Version 6)
Quarter: 2019Q4

REPORT INFORMATION
  Report Type: Report from Study
  Country: US (occurrence: US)
  Receive Date: 20190808
  Receipt Date: 20191119
  Transmission Date: 20200122
  Serious: Yes (Hospitalization, Other)
  Sender: FDA-Public Use
  Company Number: PHEH2019US032917

PATIENT
  Age: 67 Year
  Sex: Male

DRUGS (2)
  1. GILENYA [Suspect]
     Active Substance: FINGOLIMOD HYDROCHLORIDE
     Dosage: 0.5 MG, QD
     Route: 048
     Dates: start: 20180719
  2. GILENYA [Suspect]
     Active Substance: FINGOLIMOD HYDROCHLORIDE
     Indication: MULTIPLE SCLEROSIS
     Dosage: 0.5 MG, QD
     Route: 048
     Dates: start: 20180709

REACTIONS (6)
  - Urinary tract infection [Not Recovered/Not Resolved]
  - Herpes zoster [Unknown]
  - Pseudomonas infection [Recovering/Resolving]
  - Seroma [Recovering/Resolving]
  - Kyphoscoliosis [Unknown]
  - Spondylolisthesis [Unknown]

NARRATIVE: CASE EVENT DATE: 20190627
